FAERS Safety Report 7759649-0 (Version None)
Quarter: 2011Q3

REPORT INFORMATION
  Report Type: 
  Country: None (occurrence: None)
  Receive Date: 20110915
  Receipt Date: 20110830
  Transmission Date: 20111222
  Serious: Yes (Hospitalization, Other)
  Sender: FDA-Public Use
  Company Number: 2011MA012741

PATIENT
  Age: 11 Year
  Sex: Female

DRUGS (13)
  1. TRIMETHOPRIM [Suspect]
     Indication: PROPHYLAXIS
     Dosage: 5 MG/KG;BID 3 DAYS / WEEK;
  2. OXALIPLATIN [Suspect]
     Indication: NEUROBLASTOMA
     Dosage: 85 MG/M2/2H;IV
     Route: 042
  3. IRINOTECAN HCL [Suspect]
     Indication: NEUROBLASTOMA
     Dosage: 175 MG/M2/2H;IV
     Route: 042
  4. ONDANSETRON [Suspect]
     Indication: PROPHYLAXIS OF NAUSEA AND VOMITING
     Dosage: 5 MG/M2;IV
     Route: 042
  5. AMPHOTERICIN B [Suspect]
     Indication: FUNGAL INFECTION
     Dosage: 4 X2ML/D; PO
     Route: 048
  6. SULFONAMIDE (NO PREF. NAME) [Suspect]
     Indication: PNEUMOCYSTIS JIROVECI INFECTION
     Dosage: 5 MG/KG;BID 3 DAYS/WEEK;
  7. SODIUM CHLORIDE 0.9% [Suspect]
     Indication: DEHYDRATION
     Dosage: 0.45 %; IV
     Route: 042
  8. GEMCITABINE HYDROCHLORIDE [Suspect]
     Indication: NEUROBLASTOMA
     Dosage: 1000 MG/M2/0.5H;IV
     Route: 042
  9. TROPISETRON HYDROCHLORIDE (TROPISETRON HYDROCHLORIDE) [Suspect]
     Indication: PROPHYLAXIS OF NAUSEA AND VOMITING
     Dosage: 0.2 MG/KG;IV
     Route: 042
  10. DEXTROSE 5% [Suspect]
     Dosage: 5 % 3L/M2/D;IV
     Route: 042
  11. DIMENHYDRINATE [Suspect]
     Indication: PROPHYLAXIS OF NAUSEA AND VOMITING
     Dosage: 2 MG/KG/DOSE;IV
     Route: 042
  12. LOPERAMIDE [Suspect]
     Indication: DIARRHOEA
     Dosage: 2 MG;PO
     Route: 048
  13. LOPERAMIDE [Suspect]
     Indication: CHOLINERGIC SYNDROME
     Dosage: 2 MG;PO
     Route: 048

REACTIONS (2)
  - LEUKOPENIA [None]
  - THROMBOCYTOPENIA [None]
